FAERS Safety Report 23778540 (Version 1)
Quarter: 2024Q2

REPORT INFORMATION
  Report Type: Spontaneous
  Country: US (occurrence: US)
  Receive Date: 20240424
  Receipt Date: 20240424
  Transmission Date: 20240716
  Serious: No
  Sender: FDA-Public Use
  Company Number: US-009507513-2403USA009468

PATIENT
  Age: 40 Year
  Sex: Male

DRUGS (6)
  1. INTEGRILIN [Suspect]
     Active Substance: EPTIFIBATIDE
     Indication: Acute myocardial infarction
     Dosage: 72 HOURS
  2. INTEGRILIN [Suspect]
     Active Substance: EPTIFIBATIDE
     Dosage: UNK
     Route: 022
  3. ASPIRIN [Concomitant]
     Active Substance: ASPIRIN
     Indication: Antiplatelet therapy
     Dosage: UNK
  4. TICAGRELOR [Concomitant]
     Active Substance: TICAGRELOR
     Indication: Antiplatelet therapy
     Dosage: UNK
  5. BIVALIRUDIN [Concomitant]
     Active Substance: BIVALIRUDIN
  6. WARFARIN [Concomitant]
     Active Substance: WARFARIN

REACTIONS (1)
  - Incorrect route of product administration [Unknown]
